FAERS Safety Report 6265160-9 (Version None)
Quarter: 2009Q3

REPORT INFORMATION
  Report Type: 
  Country: None (occurrence: None)
  Receive Date: 20090713
  Receipt Date: 20090702
  Transmission Date: 20100115
  Serious: Yes (Other)
  Sender: FDA-Public Use
  Company Number: PHHY2008JP28220

PATIENT
  Sex: Female
  Weight: 48 kg

DRUGS (4)
  1. ZOMETA [Suspect]
     Indication: METASTASES TO BONE
     Dosage: 4 MG (PER ADMINISTRATION)
     Route: 042
     Dates: start: 20060501, end: 20060830
  2. ZOMETA [Suspect]
     Dosage: 4 MG (PER ADMINISTRATION)
     Route: 042
     Dates: start: 20061101, end: 20070601
  3. AREDIA [Suspect]
     Indication: METASTASES TO BONE
     Dosage: 90 MG (PER ADMINISTRATION)
     Route: 042
     Dates: start: 20050101, end: 20060401
  4. ALENDRONATE SODIUM [Suspect]
     Indication: BREAST CANCER
     Dosage: UNK
     Route: 042
     Dates: end: 20050101

REACTIONS (7)
  - BONE DISORDER [None]
  - HYPOAESTHESIA TEETH [None]
  - JAW OPERATION [None]
  - OSTEOMYELITIS [None]
  - PAIN IN JAW [None]
  - PERICORONITIS [None]
  - TOOTH EXTRACTION [None]
